FAERS Safety Report 4965082-7 (Version None)
Quarter: 2006Q1

REPORT INFORMATION
  Report Type: 
  Country: None (occurrence: None)
  Receive Date: 20060207
  Receipt Date: 20050103
  Transmission Date: 20060701
  Serious: No
  Sender: FDA-Public Use
  Company Number: 240467

PATIENT
  Age: 50 Year
  Sex: Female
  Weight: 108.8 kg

DRUGS (3)
  1. NOVOLOG [Suspect]
     Indication: DIABETES MELLITUS INSULIN-DEPENDENT
     Dosage: SEE IMAGE
     Route: 058
     Dates: start: 20040801, end: 20041109
  2. NOVOLOG [Suspect]
     Indication: DIABETES MELLITUS INSULIN-DEPENDENT
     Dosage: SEE IMAGE
     Route: 058
     Dates: start: 20041109
  3. MINIMED INSULIN PUMP [Concomitant]

REACTIONS (1)
  - BLOOD GLUCOSE DECREASED [None]
